FAERS Safety Report 6239838-7 (Version None)
Quarter: 2009Q2

REPORT INFORMATION
  Report Type: 
  Country: None (occurrence: None)
  Receive Date: 20090623
  Receipt Date: 20090618
  Transmission Date: 20091009
  Serious: No
  Sender: FDA-Public Use
  Company Number: DE-BIOGENIDEC-2009BI000882

PATIENT
  Age: 44 Year
  Sex: Female

DRUGS (2)
  1. TYSABRI [Suspect]
     Indication: RELAPSING-REMITTING MULTIPLE SCLEROSIS
     Route: 042
     Dates: start: 20080808, end: 20081111
  2. TYSABRI [Suspect]
     Route: 042
     Dates: start: 20090416

REACTIONS (2)
  - ANAEMIA [None]
  - BENIGN NEOPLASM [None]
